FAERS Safety Report 6230162-5 (Version None)
Quarter: 2009Q2

REPORT INFORMATION
  Report Type: 
  Country: None (occurrence: None)
  Receive Date: 20090615
  Receipt Date: 20090608
  Transmission Date: 20091009
  Serious: Yes (Hospitalization)
  Sender: FDA-Public Use
  Company Number: PHHO2004US04676

PATIENT
  Sex: Male
  Weight: 90 kg

DRUGS (18)
  1. CIBADREX T29368+ [Suspect]
     Indication: HYPERTENSION
     Dosage: LEVEL 1
     Route: 048
     Dates: start: 20040127
  2. CIBADREX T29368+ [Suspect]
     Dosage: LEVEL 2
     Route: 048
     Dates: start: 20040224
  3. CIBADREX T29368+ [Suspect]
     Dosage: LEVEL 3
     Route: 048
     Dates: start: 20040323, end: 20040327
  4. ZESTORETIC [Concomitant]
     Indication: HYPERTENSION
     Dosage: 20 MG, BID
     Route: 048
     Dates: start: 20000101, end: 20040126
  5. TOPROL-XL [Concomitant]
     Indication: PROPHYLAXIS
     Route: 048
     Dates: start: 20020409
  6. LIPITOR [Concomitant]
     Indication: HYPERCHOLESTEROLAEMIA
     Dosage: 10 MG, BID
     Route: 048
     Dates: start: 20030101
  7. PLAVIX [Concomitant]
     Indication: PROPHYLAXIS
     Route: 048
     Dates: start: 20030101
  8. LEVOXYL [Concomitant]
     Indication: HYPOTHYROIDISM
     Dosage: 125 UNK, QD
     Route: 048
     Dates: start: 19850101
  9. CLARITIN [Concomitant]
     Indication: SEASONAL ALLERGY
     Dosage: 10 MG, QD
     Route: 048
     Dates: start: 19910101
  10. PRILOSEC [Concomitant]
     Indication: GASTROOESOPHAGEAL REFLUX DISEASE
     Route: 048
     Dates: start: 20000101
  11. ALBUTEROL [Concomitant]
     Indication: CHRONIC OBSTRUCTIVE PULMONARY DISEASE
     Route: 048
     Dates: start: 19990101
  12. ATROVENT [Concomitant]
     Indication: CHRONIC OBSTRUCTIVE PULMONARY DISEASE
     Route: 048
     Dates: start: 19990101
  13. NASONEX [Concomitant]
     Indication: SEASONAL ALLERGY
     Dosage: 50 UG, QD
     Route: 048
     Dates: start: 20030301
  14. ADVAIR HFA [Concomitant]
     Indication: CHRONIC OBSTRUCTIVE PULMONARY DISEASE
     Route: 048
     Dates: start: 20040302
  15. SEREVENT [Concomitant]
     Indication: CHRONIC OBSTRUCTIVE PULMONARY DISEASE
     Dosage: UNK, BID
     Route: 048
     Dates: start: 20000101, end: 20040302
  16. LOPRESSOR [Concomitant]
     Dosage: UNK, UNK
     Route: 048
  17. ASPIRIN [Concomitant]
  18. VITAMINS [Concomitant]

REACTIONS (6)
  - ABDOMINAL PAIN [None]
  - CHOLELITHIASIS [None]
  - DIVERTICULITIS [None]
  - ERUCTATION [None]
  - HYPOTENSION [None]
  - LOSS OF CONSCIOUSNESS [None]
